FAERS Safety Report 9339053 (Version 1)
Quarter: 2013Q2

REPORT INFORMATION
  Report Type: Spontaneous
  Country: US (occurrence: US)
  Receive Date: 20130610
  Receipt Date: 20130610
  Transmission Date: 20140414
  Serious: No
  Sender: FDA-Public Use
  Company Number: US-009507513-1306USA003283

PATIENT
  Age: 74 Year
  Sex: Female

DRUGS (3)
  1. ZETIA [Suspect]
     Indication: BLOOD CHOLESTEROL ABNORMAL
     Dosage: 10 MG, ONCE DAILY
     Route: 048
     Dates: start: 201305
  2. NEXIUM [Suspect]
     Route: 048
  3. CARAFATE [Concomitant]

REACTIONS (5)
  - Sinus disorder [Recovered/Resolved]
  - Abnormal faeces [Recovered/Resolved]
  - Faeces pale [Recovered/Resolved]
  - Flatulence [Recovered/Resolved]
  - Diarrhoea [Recovered/Resolved]
